FAERS Safety Report 7955113-4 (Version None)
Quarter: 2011Q4

REPORT INFORMATION
  Report Type: 
  Country: None (occurrence: None)
  Receive Date: 20111129
  Receipt Date: 20111115
  Transmission Date: 20120403
  Serious: Yes (Other)
  Sender: FDA-Public Use
  Company Number: 1110475

PATIENT
  Age: 40 Year
  Sex: Male
  Weight: 100 kg

DRUGS (7)
  1. MIDAZOLAM [Suspect]
     Indication: SEDATION
     Dosage: 2 MG TOTAL, INTRAVENOUS (NOT SPECIFIED)
     Dates: start: 20111102, end: 20111102
  2. GENTAMICIN SULFATE [Suspect]
     Indication: ANTIBIOTIC PROPHYLAXIS
     Dosage: 200 MG MILLIGRAM(S), INTRATHECAL
     Route: 037
     Dates: start: 20111102, end: 20111102
  3. PROPOFOL [Suspect]
     Indication: ANAESTHESIA
     Dosage: 300MG TOTAL, INTRAVENOUS (NOT SPECIFIED)
     Route: 042
     Dates: start: 20111102, end: 20111102
  4. (REMIFENTANIL HYDROCHLORIDE) [Suspect]
     Indication: ANAESTHESIA
     Dosage: 100 MICROGRAMS TOTAL, INTRAVENOUS
     Route: 042
     Dates: start: 20111102, end: 20111102
  5. FLOXACILLIN SODIUM [Suspect]
     Indication: PRODUCT USED FOR UNKNOWN INDICATION
     Dosage: 1 G GRAM(S), INTRAVENOUS (NOT SPECIFIED)
     Route: 042
     Dates: start: 20111102, end: 20111102
  6. BUPIVACAINE HCL [Suspect]
     Indication: PERIPHERAL NERVE INJECTION
     Dosage: 62.5MG TOTAL, INTRAMUSCULAR
     Route: 030
     Dates: start: 20111102, end: 20111102
  7. CHLORHEXIDINE GLUCONATE [Suspect]
     Indication: PRODUCT USED FOR UNKNOWN INDICATION
     Dosage: 0.5%, TOPICAL
     Route: 061
     Dates: start: 20111102, end: 20111102

REACTIONS (1)
  - ANAPHYLACTIC REACTION [None]
